FAERS Safety Report 5910540-1 (Version None)
Quarter: 2008Q4

REPORT INFORMATION
  Report Type: 
  Country: None (occurrence: None)
  Receive Date: 20081007
  Receipt Date: 20080305
  Transmission Date: 20090506
  Serious: No
  Sender: FDA-Public Use
  Company Number: US-ASTRAZENECA-2008UW04464

PATIENT
  Age: 57 Year
  Sex: Female
  Weight: 101.6 kg

DRUGS (3)
  1. ARIMIDEX [Suspect]
     Indication: BREAST CANCER
     Route: 048
     Dates: start: 20080201
  2. HYDROCHLOROTHIAZIDE [Concomitant]
  3. RECEPTIN [Concomitant]

REACTIONS (2)
  - LETHARGY [None]
  - SWELLING [None]
